FAERS Safety Report 13999803 (Version 1)
Quarter: 2017Q3

REPORT INFORMATION
  Report Type: Spontaneous
  Country: RU (occurrence: RU)
  Receive Date: 20170922
  Receipt Date: 20170922
  Transmission Date: 20171128
  Serious: Yes (Other)
  Sender: FDA-Public Use
  Company Number: RU-CONCORDIA PHARMACEUTICALS INC.-E2B_00008394

PATIENT
  Age: 43 Year
  Sex: Female

DRUGS (3)
  1. PREDNISOLONE. [Suspect]
     Active Substance: PREDNISOLONE
     Indication: SARCOIDOSIS
     Route: 048
     Dates: start: 2005
  2. PREDNISOLONE. [Suspect]
     Active Substance: PREDNISOLONE
     Dosage: DECREASE TO 1 TABLET PER MONTH UP TO 15 MG DAILY
     Route: 048
     Dates: start: 2005
  3. ALPHA-TOCOPHEROL [Concomitant]
     Active Substance: .ALPHA.-TOCOPHEROL
     Indication: SARCOIDOSIS

REACTIONS (5)
  - Duodenal ulcer [Not Recovered/Not Resolved]
  - Weight increased [Unknown]
  - Cushing^s syndrome [Unknown]
  - Herpes zoster [Unknown]
  - Leukopenia [Unknown]

NARRATIVE: CASE EVENT DATE: 2005
